FAERS Safety Report 5409570-8 (Version None)
Quarter: 2007Q3

REPORT INFORMATION
  Report Type: 
  Country: None (occurrence: None)
  Receive Date: 20070809
  Receipt Date: 20070801
  Transmission Date: 20080115
  Serious: Yes (Other)
  Sender: FDA-Public Use
  Company Number: US-ASTRAZENECA-2007UW18479

PATIENT
  Age: 48 Year
  Sex: Female
  Weight: 99.8 kg

DRUGS (3)
  1. RHINOCORT [Suspect]
     Indication: NASAL CONGESTION
     Route: 045
     Dates: start: 19980101
  2. TEGRETOL-XR [Concomitant]
  3. OMNICEF [Concomitant]

REACTIONS (1)
  - NASAL POLYPS [None]
